FAERS Safety Report 10989252 (Version 1)
Quarter: 2015Q2

REPORT INFORMATION
  Report Type: Other
  Country: GB (occurrence: GB)
  Receive Date: 20150406
  Receipt Date: 20150406
  Transmission Date: 20150821
  Serious: Yes (Death, Other)
  Sender: FDA-Public Use
  Company Number: GB-UNITED THERAPEUTICS-UNT-2015-003829

PATIENT

DRUGS (1)
  1. REMODULIN [Suspect]
     Active Substance: TREPROSTINIL
     Indication: PRODUCT USED FOR UNKNOWN INDICATION
     Dosage: UNK
     Route: 058
     Dates: start: 200210, end: 200308

REACTIONS (2)
  - Transplant [Unknown]
  - Death [Fatal]

NARRATIVE: CASE EVENT DATE: 2003
